FAERS Safety Report 19065934 (Version 3)
Quarter: 2021Q2

REPORT INFORMATION
  Report Type: Report from Study
  Country: MX (occurrence: MX)
  Receive Date: 20210327
  Receipt Date: 20210426
  Transmission Date: 20210717
  Serious: Yes (Other)
  Sender: FDA-Public Use
  Company Number: NVSC2021MX068520

PATIENT
  Age: 56 Year
  Sex: Female
  Weight: 105 kg

DRUGS (2)
  1. EXFORGE HCT [Suspect]
     Active Substance: AMLODIPINE BESYLATE\HYDROCHLOROTHIAZIDE\VALSARTAN
     Indication: HYPERTENSION
     Dosage: 1 DF, QD
     Route: 048
     Dates: start: 2017
  2. EXFORGE HCT [Suspect]
     Active Substance: AMLODIPINE BESYLATE\HYDROCHLOROTHIAZIDE\VALSARTAN
     Dosage: UNK
     Route: 048
     Dates: start: 2017

REACTIONS (4)
  - Asymptomatic COVID-19 [Recovered/Resolved]
  - Movement disorder [Recovering/Resolving]
  - Pulmonary oedema [Unknown]
  - Fatigue [Unknown]

NARRATIVE: CASE EVENT DATE: 202102
